FAERS Safety Report 6725945-9 (Version None)
Quarter: 2010Q2

REPORT INFORMATION
  Report Type: 
  Country: None (occurrence: None)
  Receive Date: 20100514
  Receipt Date: 20100510
  Transmission Date: 20101027
  Serious: Yes (Death, Other)
  Sender: FDA-Public Use
  Company Number: DE-CELGENEUS-062-21880-10050779

PATIENT

DRUGS (5)
  1. REVLIMID [Suspect]
     Indication: AMYLOIDOSIS
     Route: 048
  2. DEXAMETHASONE [Concomitant]
     Indication: AMYLOIDOSIS
     Route: 065
  3. CIPROFLOXACIN [Concomitant]
     Indication: INFECTION PROPHYLAXIS
     Route: 065
  4. ASPIRIN [Concomitant]
     Route: 065
  5. LOW WEIGHT HEPARIN [Concomitant]
     Route: 065

REACTIONS (6)
  - AMYLOIDOSIS [None]
  - DEEP VEIN THROMBOSIS [None]
  - FATIGUE [None]
  - HAEMATOTOXICITY [None]
  - INFECTION [None]
  - RENAL IMPAIRMENT [None]
